FAERS Safety Report 8130175-2 (Version None)
Quarter: 2012Q1

REPORT INFORMATION
  Report Type: 
  Country: None (occurrence: None)
  Receive Date: 20120210
  Receipt Date: 20120130
  Transmission Date: 20120608
  Serious: Yes (Hospitalization, Other)
  Sender: FDA-Public Use
  Company Number: US-ELI_LILLY_AND_COMPANY-US201112002500

PATIENT
  Sex: Female

DRUGS (9)
  1. BYETTA [Suspect]
     Dosage: 10 UG, BID
     Route: 058
     Dates: start: 20100409, end: 20111130
  2. JANUVIA [Concomitant]
     Indication: TYPE 2 DIABETES MELLITUS
     Dosage: 100 MG, UNKNOWN
  3. LANTUS [Concomitant]
     Dosage: 35 U, UNKNOWN
  4. BYETTA [Suspect]
     Dosage: 5 UG, BID
     Route: 058
     Dates: start: 20100326, end: 20100408
  5. JANUVIA [Concomitant]
     Dosage: 50 MG, UNKNOWN
     Route: 048
  6. GLYBURIDE [Concomitant]
     Dosage: UNK, UNKNOWN
  7. HUMULIN R [Concomitant]
     Indication: DIABETES MELLITUS
     Dosage: UNK, PRN
     Route: 058
  8. AMARYL [Concomitant]
     Indication: TYPE 2 DIABETES MELLITUS
     Dosage: 40 MG, UNKNOWN
     Route: 048
  9. LANTUS [Concomitant]
     Dosage: 27 U, UNKNOWN

REACTIONS (6)
  - HEPATIC ENZYME INCREASED [None]
  - NAUSEA [None]
  - PYREXIA [None]
  - OFF LABEL USE [None]
  - VOMITING [None]
  - DRUG INEFFECTIVE [None]
